FAERS Safety Report 5339606-4 (Version None)
Quarter: 2007Q2

REPORT INFORMATION
  Report Type: 
  Country: None (occurrence: None)
  Receive Date: 20070525
  Receipt Date: 20070511
  Transmission Date: 20071010
  Serious: Yes (Other)
  Sender: FDA-Public Use
  Company Number: 2007SP009674

PATIENT
  Age: 3 Year
  Sex: Male

DRUGS (1)
  1. CLARITIN [Suspect]
     Indication: RHINORRHOEA
     Dosage: PO
     Route: 048
     Dates: start: 20070504

REACTIONS (3)
  - ABNORMAL BEHAVIOUR [None]
  - AGGRESSION [None]
  - IRRITABILITY [None]
